FAERS Safety Report 6836449-7 (Version None)
Quarter: 2010Q3

REPORT INFORMATION
  Report Type: 
  Country: None (occurrence: None)
  Receive Date: 20100713
  Receipt Date: 20100706
  Transmission Date: 20110219
  Serious: Yes (Death)
  Sender: FDA-Public Use
  Company Number: JP-SANOFI-AVENTIS-2010SA010761

PATIENT
  Age: 65 Year
  Sex: Male
  Weight: 47 kg

DRUGS (15)
  1. PLAVIX [Suspect]
     Indication: ACUTE MYOCARDIAL INFARCTION
     Route: 048
     Dates: start: 20091020, end: 20091020
  2. PLAVIX [Suspect]
     Route: 048
     Dates: start: 20091021, end: 20091119
  3. ASPIRIN [Concomitant]
     Indication: ACUTE MYOCARDIAL INFARCTION
     Route: 048
     Dates: start: 20091020, end: 20091119
  4. HEPARIN [Concomitant]
     Indication: ACUTE MYOCARDIAL INFARCTION
     Dosage: DOSE:12000 UNIT(S)
     Route: 042
     Dates: start: 20091020, end: 20091119
  5. NICORANDIL [Concomitant]
     Indication: ACUTE MYOCARDIAL INFARCTION
     Dosage: 2MG/H
     Route: 065
     Dates: start: 20091021, end: 20091022
  6. NICORANDIL [Concomitant]
     Dosage: 8MG/H
     Route: 065
     Dates: start: 20091022, end: 20091024
  7. NICORANDIL [Concomitant]
     Dosage: 10MG/H
     Route: 065
     Dates: start: 20091024, end: 20091025
  8. NICORANDIL [Concomitant]
     Dosage: 8MG/H
     Route: 065
     Dates: start: 20091025, end: 20091029
  9. NICORANDIL [Concomitant]
     Dosage: 2MG/H
     Route: 065
     Dates: start: 20091029, end: 20091031
  10. CEFAZOLIN SODIUM [Concomitant]
     Indication: ACUTE MYOCARDIAL INFARCTION
     Dates: start: 20091020, end: 20091023
  11. ROSUVASTATIN [Concomitant]
     Indication: ACUTE MYOCARDIAL INFARCTION
     Route: 048
     Dates: start: 20091020, end: 20091119
  12. SPIRONOLACTONE [Concomitant]
     Indication: ACUTE MYOCARDIAL INFARCTION
     Dates: start: 20091020, end: 20091119
  13. NITROGLYCERIN ^SLOVAKOFARMA^ [Concomitant]
     Indication: ACUTE MYOCARDIAL INFARCTION
     Dates: start: 20091020, end: 20091119
  14. IMIDAPRIL [Concomitant]
     Indication: ACUTE MYOCARDIAL INFARCTION
     Route: 048
     Dates: start: 20091021, end: 20091119
  15. FUROSEMIDE [Concomitant]
     Indication: ACUTE MYOCARDIAL INFARCTION
     Dates: start: 20091020, end: 20091119

REACTIONS (2)
  - COLLAGEN DISORDER [None]
  - PNEUMONIA [None]
